FAERS Safety Report 8614974-6 (Version None)
Quarter: 2012Q3

REPORT INFORMATION
  Report Type: 
  Country: None (occurrence: None)
  Receive Date: 20120823
  Receipt Date: 20120810
  Transmission Date: 20120928
  Serious: Yes (Other)
  Sender: FDA-Public Use
  Company Number: JP-VERTEX PHARMACEUTICAL INC.-2012-019717

PATIENT
  Age: 59 Year
  Sex: Male

DRUGS (7)
  1. FAMOTIDINE [Concomitant]
     Dosage: 40 MG, QD
     Route: 048
  2. VX-950 [Suspect]
     Indication: HEPATITIS C
     Dosage: 2250 MG, QD
     Route: 048
     Dates: start: 20120613, end: 20120616
  3. REBETOL [Concomitant]
     Indication: HEPATITIS C
     Dosage: 600 MG, QD
     Route: 048
     Dates: start: 20120613, end: 20120616
  4. LEVOTHYROXINE SODIUM [Concomitant]
     Dosage: 25 A?G,QD
     Route: 048
  5. SELBEX [Concomitant]
     Dosage: 150 MG, QD
     Route: 048
  6. PEGINTRON                          /01543001/ [Concomitant]
     Indication: HEPATITIS C
     Dosage: 1.5 A?G/KG, UNK
     Route: 058
     Dates: start: 20120613, end: 20120613
  7. URSODIOL [Concomitant]
     Dosage: 600 MG, QD
     Route: 048

REACTIONS (2)
  - NEUTROPHIL COUNT DECREASED [None]
  - WHITE BLOOD CELL COUNT DECREASED [None]
